FAERS Safety Report 12055694 (Version 2)
Quarter: 2016Q1

REPORT INFORMATION
  Report Type: Spontaneous
  Country: US (occurrence: US)
  Receive Date: 20160209
  Receipt Date: 20160225
  Transmission Date: 20160526
  Serious: No
  Sender: FDA-Public Use
  Company Number: US-ASTRAZENECA-2016SE10225

PATIENT
  Age: 27203 Day
  Sex: Male
  Weight: 99.8 kg

DRUGS (2)
  1. BYDUREON [Suspect]
     Active Substance: EXENATIDE
     Indication: TYPE 2 DIABETES MELLITUS
     Dosage: 2 MG ONCE A WEEK
     Route: 058
  2. INSULIN [Concomitant]
     Active Substance: INSULIN NOS
     Dosage: THREE TIMES A DAY

REACTIONS (2)
  - Injection site haemorrhage [Recovered/Resolved]
  - Device failure [Unknown]

NARRATIVE: CASE EVENT DATE: 20160128
